FAERS Safety Report 9830844 (Version 1)
Quarter: 2014Q1

REPORT INFORMATION
  Report Type: Report from Study
  Country: US (occurrence: US)
  Receive Date: 20140120
  Receipt Date: 20140120
  Transmission Date: 20141002
  Serious: Yes (Hospitalization)
  Sender: FDA-Public Use
  Company Number: US-GILEAD-2014-0092249

PATIENT
  Age: 71 Year
  Sex: Female
  Weight: 69.9 kg

DRUGS (8)
  1. BLINDED AMBRISENTAN [Suspect]
     Indication: PULMONARY ARTERIAL HYPERTENSION
     Dosage: 1 DF, QD
     Route: 048
     Dates: start: 20130621
  2. BLINDED CANDESARTAN [Suspect]
     Indication: PULMONARY ARTERIAL HYPERTENSION
     Dosage: 1 DF, QD
     Route: 048
     Dates: start: 20130621
  3. BLINDED PLACEBO [Suspect]
     Indication: PULMONARY ARTERIAL HYPERTENSION
     Dosage: 1 DF, QD
     Route: 048
     Dates: start: 20130621
  4. BLINDED TADALAFIL [Suspect]
     Indication: PULMONARY ARTERIAL HYPERTENSION
     Dosage: 1 DF, QD
     Route: 048
     Dates: start: 20130621
  5. TREPROSTINIL [Suspect]
     Indication: PULMONARY ARTERIAL HYPERTENSION
     Dosage: 0.22 CC/HR
     Route: 058
     Dates: start: 201312
  6. TREPROSTINIL [Suspect]
     Dosage: 0.020CC/HR
     Route: 058
     Dates: start: 20130930, end: 201312
  7. TORSEMIDE [Concomitant]
     Indication: FLUID RETENTION
     Dosage: 250MG PER DAY
     Route: 048
     Dates: start: 20131210, end: 20131212
  8. METOLAZONE [Concomitant]
     Indication: FLUID RETENTION
     Dosage: 2.5MG PER DAY
     Route: 048
     Dates: start: 20131210, end: 20131212

REACTIONS (3)
  - Headache [Recovered/Resolved]
  - Nausea [Recovered/Resolved]
  - Vomiting [Recovered/Resolved]
